FAERS Safety Report 16283030 (Version 5)
Quarter: 2022Q1

REPORT INFORMATION
  Report Type: Spontaneous
  Country: US (occurrence: None)
  Receive Date: 20190507
  Receipt Date: 20220222
  Transmission Date: 20220423
  Serious: Yes (Death, Hospitalization, Other)
  Sender: FDA-Public Use
  Company Number: 2019SE65734

PATIENT
  Age: 22909 Day
  Sex: Male
  Weight: 81.1 kg

DRUGS (65)
  1. NEXIUM [Suspect]
     Active Substance: ESOMEPRAZOLE MAGNESIUM
     Indication: Gastrooesophageal reflux disease
     Route: 048
     Dates: start: 198901, end: 199912
  2. NEXIUM [Suspect]
     Active Substance: ESOMEPRAZOLE MAGNESIUM
     Indication: Gastrooesophageal reflux disease
     Route: 048
     Dates: start: 200102, end: 20091231
  3. PRILOSEC [Suspect]
     Active Substance: OMEPRAZOLE MAGNESIUM
     Indication: Gastrooesophageal reflux disease
     Route: 048
     Dates: start: 198901, end: 199912
  4. PRILOSEC [Suspect]
     Active Substance: OMEPRAZOLE MAGNESIUM
     Indication: Gastrooesophageal reflux disease
     Dosage: GENERIC
     Route: 065
     Dates: start: 200307, end: 2020
  5. PRILOSEC [Suspect]
     Active Substance: OMEPRAZOLE MAGNESIUM
     Indication: Gastrooesophageal reflux disease
     Route: 048
     Dates: start: 20130326, end: 20181118
  6. PREVACID [Suspect]
     Active Substance: LANSOPRAZOLE
     Indication: Gastrooesophageal reflux disease
     Route: 065
     Dates: start: 198901, end: 199912
  7. PREVACID [Suspect]
     Active Substance: LANSOPRAZOLE
     Indication: Gastrooesophageal reflux disease
     Route: 065
     Dates: start: 19890101, end: 19991231
  8. AMLODIPINE BESYLATE [Concomitant]
     Active Substance: AMLODIPINE BESYLATE
     Indication: Hypertension
     Dates: start: 20090810, end: 20140324
  9. CLONIDINE [Concomitant]
     Active Substance: CLONIDINE
     Indication: Hypertension
     Dates: start: 20090519, end: 20141015
  10. FLUCONAZOLE [Concomitant]
     Active Substance: FLUCONAZOLE
     Indication: Fungal infection
     Dates: start: 20140525, end: 20150424
  11. LISINOPRIL [Concomitant]
     Active Substance: LISINOPRIL
     Indication: Hypertension
     Dates: start: 20130424
  12. METOPROLOL [Concomitant]
     Active Substance: METOPROLOL
     Indication: Hypertension
     Dates: start: 20130425, end: 20141210
  13. LIDOCAINE [Concomitant]
     Active Substance: LIDOCAINE
     Indication: Rash
     Dates: end: 20200224
  14. ASPIRIN [Concomitant]
     Active Substance: ASPIRIN
     Indication: Pain
     Dates: start: 20181118, end: 20181120
  15. ACETAMINOPHEN\HYDROCODONE BITARTRATE [Concomitant]
     Active Substance: ACETAMINOPHEN\HYDROCODONE BITARTRATE
     Indication: Pain
     Dates: start: 20150429, end: 20150530
  16. ACETAMINOPHEN\OXYCODONE HYDROCHLORIDE [Concomitant]
     Active Substance: ACETAMINOPHEN\OXYCODONE HYDROCHLORIDE
     Indication: Pain
     Dates: start: 20150603, end: 20150703
  17. PEPCID [Concomitant]
     Active Substance: FAMOTIDINE
     Dates: start: 200805, end: 201006
  18. TAGAMET [Concomitant]
     Active Substance: CIMETIDINE
  19. ZANTAC [Concomitant]
     Active Substance: RANITIDINE HYDROCHLORIDE
     Dates: start: 200209, end: 200308
  20. CETIRIZINE HYDROCHLORIDE [Concomitant]
     Active Substance: CETIRIZINE HYDROCHLORIDE
  21. COLESTIPOL [Concomitant]
     Active Substance: COLESTIPOL
  22. PSYLLIUM [Concomitant]
     Active Substance: PLANTAGO SEED
  23. SERENOA REPENS EXTRACT/ECHINACEA ANGUSTIFOLIA DRY EXTRACT/TROSPIUM CHL [Concomitant]
  24. TERAZOSIN [Concomitant]
     Active Substance: TERAZOSIN HYDROCHLORIDE
  25. TADALAFIL [Concomitant]
     Active Substance: TADALAFIL
  26. CALCIUM ACETATE [Concomitant]
     Active Substance: CALCIUM ACETATE
  27. BUDESONIDE [Concomitant]
     Active Substance: BUDESONIDE
  28. SODIUM BICARBONATE [Concomitant]
     Active Substance: SODIUM BICARBONATE
  29. PREDNISONE [Concomitant]
     Active Substance: PREDNISONE
  30. GENERLAC [Concomitant]
     Active Substance: LACTULOSE
  31. TAMSULOSIN [Concomitant]
     Active Substance: TAMSULOSIN
  32. BISACODYL [Concomitant]
     Active Substance: BISACODYL
  33. FERROUS FUMARATE [Concomitant]
     Active Substance: FERROUS FUMARATE
  34. HYDROCHLOROTHIAZIDE [Concomitant]
     Active Substance: HYDROCHLOROTHIAZIDE
     Indication: Hypertension
     Dates: start: 20120810, end: 20120911
  35. TEMAZEPAM [Concomitant]
     Active Substance: TEMAZEPAM
     Indication: Insomnia
     Dates: start: 20150415, end: 20150928
  36. GABAPENTIN [Concomitant]
     Active Substance: GABAPENTIN
     Indication: Pain
     Dates: start: 202001, end: 202003
  37. AMIODARONE [Concomitant]
     Active Substance: AMIODARONE
     Indication: Cardiac disorder
     Dates: start: 201903, end: 202003
  38. MEGESTROL [Concomitant]
     Active Substance: MEGESTROL
     Indication: Decreased appetite
     Dates: start: 2015, end: 202003
  39. ATROPINE\DIPHENOXYLATE [Concomitant]
     Active Substance: ATROPINE\DIPHENOXYLATE
     Indication: Diarrhoea
     Dates: start: 2015, end: 202003
  40. CLOPIDOGREL BISULFATE [Concomitant]
     Active Substance: CLOPIDOGREL BISULFATE
     Indication: Thrombosis
     Dates: start: 2015, end: 202003
  41. ROSUVASTATIN [Concomitant]
     Active Substance: ROSUVASTATIN
     Indication: Cardiac disorder
     Dates: start: 201909, end: 202003
  42. ATENOLOL [Concomitant]
     Active Substance: ATENOLOL
     Indication: Blood pressure abnormal
     Dates: start: 2019, end: 20200224
  43. LORATABINE [Concomitant]
     Indication: Multiple allergies
     Dates: start: 20200224
  44. VITAMINS [Concomitant]
     Active Substance: VITAMINS
     Indication: Appetite disorder
     Dates: start: 201510, end: 20200224
  45. PEPTO-BISMOL [Concomitant]
     Active Substance: BISMUTH SUBSALICYLATE
     Dates: start: 199001, end: 200401
  46. OXYCONTINE [Concomitant]
     Dates: start: 199001, end: 200401
  47. LEVITRA [Concomitant]
     Active Substance: VARDENAFIL HYDROCHLORIDE
     Dates: start: 199001, end: 200401
  48. MOTRIN [Concomitant]
     Active Substance: IBUPROFEN
     Dates: start: 199001, end: 200401
  49. VARDENAFIL [Concomitant]
     Active Substance: VARDENAFIL HYDROCHLORIDE
     Dates: start: 199001, end: 200401
  50. DITROPAN [Concomitant]
     Active Substance: OXYBUTYNIN CHLORIDE
     Dates: start: 199001, end: 200401
  51. LOPRESSOR [Concomitant]
     Active Substance: METOPROLOL TARTRATE
     Dates: start: 199001, end: 200401
  52. FLOMAX [Concomitant]
     Active Substance: TAMSULOSIN HYDROCHLORIDE
     Dates: start: 199001, end: 200401
  53. SULFAMETHOXAZOLE [Concomitant]
     Active Substance: SULFAMETHOXAZOLE
     Dates: start: 199001, end: 200401
  54. VIAGRA [Concomitant]
     Active Substance: SILDENAFIL CITRATE
  55. VITAMIN B12 [Concomitant]
     Active Substance: CYANOCOBALAMIN
  56. PENICILLIN [Concomitant]
     Active Substance: PENICILLIN
  57. FLUNISOLIDE [Concomitant]
     Active Substance: FLUNISOLIDE
  58. SPIRONOLACTONE [Concomitant]
     Active Substance: SPIRONOLACTONE
  59. TROSPIUM CHLORIDE [Concomitant]
     Active Substance: TROSPIUM CHLORIDE
  60. PNEUMOVAX 23 [Concomitant]
     Active Substance: PNEUMOCOCCAL VACCINE, POLYVALENT 23
  61. PSYLLIUM MUCILLOID [Concomitant]
  62. COLESTIPOL HYDROCHLORIDE [Concomitant]
     Active Substance: COLESTIPOL HYDROCHLORIDE
  63. FOLIC ACID [Concomitant]
     Active Substance: FOLIC ACID
  64. THIAMINE HYDROCHLORIDE [Concomitant]
     Active Substance: THIAMINE HYDROCHLORIDE
  65. WARFARIN [Concomitant]
     Active Substance: WARFARIN

REACTIONS (9)
  - End stage renal disease [Fatal]
  - Acute kidney injury [Unknown]
  - Nephrogenic anaemia [Unknown]
  - Chronic kidney disease [Unknown]
  - Hyperparathyroidism secondary [Unknown]
  - Renal failure [Unknown]
  - Chronic kidney disease-mineral and bone disorder [Unknown]
  - Urinary incontinence [Unknown]
  - Gastrooesophageal reflux disease [Unknown]

NARRATIVE: CASE EVENT DATE: 20090128
